FAERS Safety Report 8200045-X (Version None)
Quarter: 2012Q1

REPORT INFORMATION
  Report Type: 
  Country: None (occurrence: None)
  Receive Date: 20120306
  Receipt Date: 20120224
  Transmission Date: 20120608
  Serious: Yes (Other)
  Sender: FDA-Public Use
  Company Number: AUR-APL-2012-00997

PATIENT
  Age: 55 Year
  Sex: Female
  Weight: 91 kg

DRUGS (9)
  1. NAPROXEN [Concomitant]
  2. FLUTICASONE PROPIONATE [Concomitant]
  3. CHANTIX [Suspect]
  4. LISINOPRIL [Suspect]
     Indication: BLOOD PRESSURE ABNORMAL
     Dosage: (20 MG, 1 D), UNKNOWN
  5. CHANTIX [Suspect]
     Indication: SMOKING CESSATION THERAPY
     Dosage: (0.5 MG, 1 D), ORAL 2 MG (1 MG, 2 IN 1 D), UNKNOWN
     Route: 048
     Dates: start: 20120128, end: 20120101
  6. CHANTIX [Suspect]
     Indication: SMOKING CESSATION THERAPY
     Dosage: (0.5 MG, 1 D), ORAL 2 MG (1 MG, 2 IN 1 D), UNKNOWN
     Route: 048
     Dates: start: 20120101, end: 20120206
  7. CETIRIZINE [Concomitant]
  8. LISINOPRIL [Suspect]
     Indication: BLOOD PRESSURE ABNORMAL
     Dosage: (10 MG, 1 D), ORAL
     Route: 048
  9. PRAVASTATIN [Concomitant]

REACTIONS (8)
  - CONSTIPATION [None]
  - HAEMORRHOIDAL HAEMORRHAGE [None]
  - PAIN [None]
  - DIZZINESS [None]
  - VOMITING [None]
  - EMPHYSEMA [None]
  - ANXIETY [None]
  - NAUSEA [None]
